FAERS Safety Report 8099655-2 (Version None)
Quarter: 2012Q1

REPORT INFORMATION
  Report Type: 
  Country: None (occurrence: None)
  Receive Date: 20120129
  Receipt Date: 20111007
  Transmission Date: 20120608
  Serious: No
  Sender: FDA-Public Use
  Company Number: US-ABBOTT-11P-163-0862217-00

PATIENT
  Age: 52 Year
  Sex: Female

DRUGS (3)
  1. MELOXICAM [Concomitant]
     Indication: PRODUCT USED FOR UNKNOWN INDICATION
     Dosage: DAILY
  2. HUMIRA [Suspect]
     Indication: PSORIASIS
     Dates: start: 20110201, end: 20110917
  3. CYMBALTA [Concomitant]
     Indication: DEPRESSION

REACTIONS (2)
  - PARAESTHESIA [None]
  - HERPES ZOSTER [None]
